FAERS Safety Report 5297904-7 (Version None)
Quarter: 2007Q2

REPORT INFORMATION
  Report Type: 
  Country: None (occurrence: None)
  Receive Date: 20070406
  Receipt Date: 20070327
  Transmission Date: 20071010
  Serious: Yes (Hospitalization)
  Sender: FDA-Public Use
  Company Number: 2007-00726

PATIENT
  Age: 71 Year
  Sex: Female

DRUGS (2)
  1. VELCADE [Suspect]
     Indication: MULTIPLE MYELOMA
     Dosage: 1.80 MG
     Dates: start: 20070209, end: 20070323
  2. PREDNISOLONE [Concomitant]

REACTIONS (4)
  - BRONCHITIS [None]
  - HERPES VIRUS INFECTION [None]
  - INFLAMMATION [None]
  - RASH [None]
